FAERS Safety Report 10136313 (Version 3)
Quarter: 2014Q2

REPORT INFORMATION
  Report Type: Report from Study
  Country: US (occurrence: US)
  Receive Date: 20140429
  Receipt Date: 20140509
  Transmission Date: 20141212
  Serious: Yes (Hospitalization)
  Sender: FDA-Public Use
  Company Number: US-ASTRAZENECA-2014SE27999

PATIENT
  Age: 24488 Day
  Sex: Female
  Weight: 76.7 kg

DRUGS (15)
  1. AZD6140 [Suspect]
     Indication: PERIPHERAL ARTERIAL OCCLUSIVE DISEASE
     Route: 048
     Dates: start: 20130417
  2. ATENOLOL - CHLORTHALIDONE [Concomitant]
     Indication: HYPERTENSION
     Dosage: 100/25 MG
     Route: 048
     Dates: start: 2011
  3. PATANOL [Concomitant]
     Indication: MULTIPLE ALLERGIES
     Route: 047
     Dates: start: 2011, end: 20140331
  4. CALCIUM CITRATE WITH D [Concomitant]
     Indication: VITAMIN SUPPLEMENTATION
     Route: 048
     Dates: start: 2012, end: 20140331
  5. FLUTICASONE PROPRIATE [Concomitant]
     Indication: MULTIPLE ALLERGIES
     Route: 055
     Dates: start: 2012
  6. LORATADINE [Concomitant]
     Indication: MULTIPLE ALLERGIES
     Route: 048
     Dates: start: 2012
  7. SUMATRIPTAN SUCCINATE [Concomitant]
     Indication: MIGRAINE
     Route: 048
     Dates: start: 2012
  8. VITAMIN A [Concomitant]
     Indication: VITAMIN SUPPLEMENTATION
     Route: 048
     Dates: start: 2012
  9. FAMOTIDINE [Concomitant]
     Indication: GASTROOESOPHAGEAL REFLUX DISEASE
     Route: 048
     Dates: start: 201301
  10. FLEXERIL [Concomitant]
     Indication: ARTHRITIS
     Route: 048
     Dates: start: 20130401, end: 20140331
  11. PLETAL [Concomitant]
     Indication: PERIPHERAL VASCULAR DISORDER
     Route: 048
     Dates: start: 20130401
  12. CRESTOR [Concomitant]
     Indication: BLOOD CHOLESTEROL INCREASED
     Route: 048
     Dates: start: 20131209
  13. TRAMADOL [Concomitant]
     Indication: PAIN
     Route: 048
     Dates: start: 20131209
  14. PROMETHAZINE WITH CODEINE [Concomitant]
     Indication: COUGH
     Route: 048
     Dates: start: 2014
  15. KLOR-CON [Concomitant]
     Indication: BLOOD POTASSIUM DECREASED
     Route: 048
     Dates: start: 20140131, end: 20140402

REACTIONS (3)
  - Anaemia [Recovered/Resolved]
  - Hiatus hernia [Not Recovered/Not Resolved]
  - Diverticulum [Not Recovered/Not Resolved]
